FAERS Safety Report 16243960 (Version 3)
Quarter: 2019Q2

REPORT INFORMATION
  Report Type: Report from Study
  Country: GB (occurrence: GB)
  Receive Date: 20190426
  Receipt Date: 20190522
  Transmission Date: 20190711
  Serious: Yes (Hospitalization)
  Sender: FDA-Public Use
  Company Number: GB-PFIZER INC-2019166507

PATIENT
  Age: 30 Year
  Sex: Female
  Weight: 111.6 kg

DRUGS (32)
  1. COCODAMOL [Concomitant]
     Active Substance: ACETAMINOPHEN\CODEINE PHOSPHATE
     Dosage: [CODEINE PHOSPHATE 30MG]/ [PARACETAMOL 500MG], AS NEEDED
     Route: 048
     Dates: start: 20150821, end: 20150828
  2. AMOXICILLIN. [Concomitant]
     Active Substance: AMOXICILLIN
     Dosage: 500 MG, 4X/DAY
     Route: 048
     Dates: start: 201710, end: 201710
  3. PREDNISOLONE. [Concomitant]
     Active Substance: PREDNISOLONE
     Dosage: 30 MG, DAILY
     Route: 048
     Dates: start: 20180924, end: 20181008
  4. VITAMIN B12 [Concomitant]
     Active Substance: CYANOCOBALAMIN
     Dosage: 1 MG, EVERY 2-3 MONTHS
     Route: 030
     Dates: start: 2018
  5. FLUCLOXACILLIN [Concomitant]
     Active Substance: FLUCLOXACILLIN
     Dosage: 500 MG, 3X/DAY
     Route: 048
     Dates: start: 20180924, end: 20180929
  6. LOPERAMIDE [Concomitant]
     Active Substance: LOPERAMIDE
     Dosage: 2 MG, AS NEEDED
     Route: 048
     Dates: start: 20150814, end: 20150814
  7. LOPERAMIDE [Concomitant]
     Active Substance: LOPERAMIDE
     Dosage: 2 MG, AS NEEDED
     Route: 048
     Dates: start: 2017
  8. IBUPROFEN. [Concomitant]
     Active Substance: IBUPROFEN
     Dosage: 10 CREAM, 2X/DAY
     Route: 061
     Dates: start: 20150910, end: 20151207
  9. AMOXICILLIN. [Concomitant]
     Active Substance: AMOXICILLIN
     Dosage: 500 MG, 3X/DAY
     Route: 048
     Dates: start: 20160527, end: 20160602
  10. AMOXICILLIN. [Concomitant]
     Active Substance: AMOXICILLIN
     Dosage: 500 MG, 3X/DAY
     Route: 048
     Dates: start: 20170213, end: 20170219
  11. PREDNISOLONE. [Concomitant]
     Active Substance: PREDNISOLONE
     Dosage: 30 MG, DAILY
     Route: 048
     Dates: start: 201710, end: 201710
  12. ONDANSETRON [Concomitant]
     Active Substance: ONDANSETRON
     Dosage: 8 MG, 2X/DAY
     Route: 048
     Dates: start: 20160105
  13. BOSUTINIB [Suspect]
     Active Substance: BOSUTINIB
     Indication: CHRONIC MYELOID LEUKAEMIA
     Dosage: 400 MG, DAILY
     Route: 048
     Dates: start: 20150720
  14. ZOPICLONE [Concomitant]
     Active Substance: ZOPICLONE
     Dosage: 3.75 MG, DAILY
     Route: 048
     Dates: start: 20150803, end: 20150805
  15. AMOXICILLIN. [Concomitant]
     Active Substance: AMOXICILLIN
     Dosage: 500 MG, 3X/DAY
     Route: 048
     Dates: start: 20171114, end: 20171118
  16. AMITRIPTYLINE [Concomitant]
     Active Substance: AMITRIPTYLINE
     Dosage: 10 MG, DAILY
     Route: 048
     Dates: start: 20180924
  17. VENTOLIN [Concomitant]
     Active Substance: ALBUTEROL SULFATE
     Indication: ASTHMA
     Dosage: 100 UG, 2X/DAY (TWICE DAILY)
     Route: 055
     Dates: start: 20050704
  18. PARACETAMOL [Concomitant]
     Active Substance: ACETAMINOPHEN
     Dosage: 1 G, AS NEEDED
     Route: 048
     Dates: start: 20150720, end: 20151012
  19. LOPERAMIDE [Concomitant]
     Active Substance: LOPERAMIDE
     Dosage: 2 MG, AS NEEDED
     Route: 048
     Dates: start: 20150721, end: 20151012
  20. LOPERAMIDE [Concomitant]
     Active Substance: LOPERAMIDE
     Dosage: 2 MG, AS NEEDED
     Route: 048
     Dates: start: 20150806, end: 20150806
  21. LOPERAMIDE [Concomitant]
     Active Substance: LOPERAMIDE
     Dosage: 2 MG, AS NEEDED
     Route: 048
     Dates: start: 20150810, end: 20150810
  22. BETNOVATE [Concomitant]
     Active Substance: BETAMETHASONE
     Dosage: 0.1 CREAM, 2X/DAY
     Route: 061
     Dates: start: 20151109, end: 201601
  23. AMOXICILLIN. [Concomitant]
     Active Substance: AMOXICILLIN
     Dosage: 500 MG, 3X/DAY
     Route: 048
     Dates: start: 20160321, end: 20160325
  24. PREDNISOLONE. [Concomitant]
     Active Substance: PREDNISOLONE
     Dosage: 30 MG, DAILY
     Route: 048
     Dates: start: 20180430, end: 20180504
  25. PREDNISOLONE. [Concomitant]
     Active Substance: PREDNISOLONE
     Dosage: 30 MG, DAILY
     Route: 048
     Dates: start: 20180416, end: 20180422
  26. LOPERAMIDE [Concomitant]
     Active Substance: LOPERAMIDE
     Dosage: 2 MG, AS NEEDED
     Route: 048
     Dates: start: 20150802, end: 20150804
  27. LOPERAMIDE [Concomitant]
     Active Substance: LOPERAMIDE
     Dosage: 2 MG, AS NEEDED
     Route: 048
     Dates: start: 20150808, end: 20150808
  28. COCODAMOL [Concomitant]
     Active Substance: ACETAMINOPHEN\CODEINE PHOSPHATE
     Dosage: [CODEINE PHOSPHATE 30MG]/ [PARACETAMOL 500MG], AS NEEDED
     Route: 048
     Dates: start: 20150901
  29. FLUDROCORTISONE [Concomitant]
     Active Substance: FLUDROCORTISONE
     Dosage: 100 UG, DAILY
     Route: 048
     Dates: start: 20181015
  30. PARACETAMOL [Concomitant]
     Active Substance: ACETAMINOPHEN
     Dosage: 1 G, AS NEEDED
     Route: 048
     Dates: start: 20150819, end: 20150819
  31. DOMPERIDONE [Concomitant]
     Active Substance: DOMPERIDONE
     Dosage: 10 MG, AS NEEDED
     Route: 048
     Dates: start: 20150721, end: 20160104
  32. AMOXICILLIN. [Concomitant]
     Active Substance: AMOXICILLIN
     Dosage: 500 MG, 3X/DAY
     Route: 048
     Dates: start: 20170508, end: 20170513

REACTIONS (1)
  - Cellulitis [Recovered/Resolved]

NARRATIVE: CASE EVENT DATE: 20181229
